FAERS Safety Report 6839726-9 (Version None)
Quarter: 2010Q3

REPORT INFORMATION
  Report Type: 
  Country: None (occurrence: None)
  Receive Date: 20100714
  Receipt Date: 20100702
  Transmission Date: 20110219
  Serious: Yes (Hospitalization)
  Sender: FDA-Public Use
  Company Number: GB-ELI_LILLY_AND_COMPANY-GB201006003464

PATIENT
  Sex: Female

DRUGS (13)
  1. GEMCITABINE HYDROCHLORIDE [Suspect]
     Indication: DIFFUSE LARGE B-CELL LYMPHOMA
     Dosage: 1501 MG, SINGLE INFUSION
     Route: 042
     Dates: end: 20100521
  2. CYCLOPHOSPHAMIDE [Suspect]
     Indication: DIFFUSE LARGE B-CELL LYMPHOMA
     Dosage: 1100 MG, SINGLE INFUSION
     Route: 042
     Dates: end: 20100521
  3. VINCRISTINE [Suspect]
     Indication: DIFFUSE LARGE B-CELL LYMPHOMA
     Dosage: 2 MG, SINGLE DOSE
     Route: 042
     Dates: end: 20100521
  4. RITUXIMAB [Suspect]
     Indication: DIFFUSE LARGE B-CELL LYMPHOMA
     Dosage: 560 MG, SINGLE INFUSION
     Route: 042
     Dates: end: 20100521
  5. PREDNISOLONE [Suspect]
     Indication: DIFFUSE LARGE B-CELL LYMPHOMA
     Dosage: 100 MG, DAILY (1/D)
     Route: 048
     Dates: end: 20100525
  6. PREDNISOLONE [Suspect]
     Dosage: 5 MG, DAILY (1/D)
     Route: 048
     Dates: start: 20100530, end: 20100530
  7. SERTRALINE HCL [Concomitant]
     Dosage: 50 MG, DAILY (1/D)
     Route: 048
  8. FLUCONAZOLE [Concomitant]
     Indication: ANTIFUNGAL PROPHYLAXIS
     Dosage: 100 MG, DAILY (1/D)
     Route: 048
     Dates: start: 20100210
  9. LANSOPRAZOLE [Concomitant]
     Dosage: 15 MG, DAILY (1/D)
     Route: 048
     Dates: start: 20100210
  10. COTRIM [Concomitant]
     Dosage: 960 MG, 2/D
     Route: 048
     Dates: start: 20100210
  11. NIFEDIPINE [Concomitant]
     Indication: HYPERTENSION
     Dosage: 20 MG, DAILY (1/D)
     Route: 048
  12. ACETAMINOPHEN [Concomitant]
     Indication: ANALGESIC THERAPY
     Dosage: 1 G, DAILY (1/D)
     Route: 048
  13. GENTAMICIN [Concomitant]
     Indication: INFECTION
     Dosage: 5 MG/KG, DAILY (1/D)
     Route: 042
     Dates: start: 20100529, end: 20100530

REACTIONS (2)
  - ESCHERICHIA INFECTION [None]
  - NEUTROPENIA [None]
